FAERS Safety Report 5047381-6 (Version None)
Quarter: 2006Q3

REPORT INFORMATION
  Report Type: 
  Country: None (occurrence: None)
  Receive Date: 20060703
  Receipt Date: 20060621
  Transmission Date: 20061208
  Serious: Yes (Other)
  Sender: FDA-Public Use
  Company Number: 2006078638

PATIENT
  Age: 44 Year
  Sex: Female

DRUGS (2)
  1. GEODON [Suspect]
     Indication: MENTAL DISORDER
     Dosage: 80 MG (80 MG, 1X/DAY:  EVERYDAY), ORAL
     Route: 048
     Dates: start: 20060401, end: 20060501
  2. FLUOXETINE [Concomitant]

REACTIONS (8)
  - ANOREXIA [None]
  - APHASIA [None]
  - CONSTIPATION [None]
  - DEPRESSION [None]
  - EMOTIONAL DISORDER [None]
  - FEAR [None]
  - SOMNOLENCE [None]
  - TREMOR [None]
